FAERS Safety Report 8058627-4 (Version None)
Quarter: 2012Q1

REPORT INFORMATION
  Report Type: 
  Country: None (occurrence: None)
  Receive Date: 20120120
  Receipt Date: 20120111
  Transmission Date: 20120608
  Serious: Yes (Other)
  Sender: FDA-Public Use
  Company Number: US-BRISTOL-MYERS SQUIBB COMPANY-16345472

PATIENT
  Age: 8 Year
  Sex: Male

DRUGS (1)
  1. ABILIFY [Suspect]
     Dosage: DURATION OF THERAPY: ALMOST A YEAR

REACTIONS (3)
  - WITHDRAWAL SYNDROME [None]
  - DIARRHOEA [None]
  - HEADACHE [None]
